FAERS Safety Report 23949410 (Version 1)
Quarter: 2024Q2

REPORT INFORMATION
  Report Type: Spontaneous
  Country: PT (occurrence: PT)
  Receive Date: 20240607
  Receipt Date: 20240607
  Transmission Date: 20240715
  Serious: Yes (Other)
  Sender: FDA-Public Use
  Company Number: PT-SUN PHARMACEUTICAL INDUSTRIES LTD-2024R1-450003

PATIENT
  Age: 49 Year
  Sex: Female

DRUGS (2)
  1. DESMOPRESSIN [Suspect]
     Active Substance: DESMOPRESSIN
     Indication: Polyuria
     Route: 042
  2. DESMOPRESSIN [Suspect]
     Active Substance: DESMOPRESSIN
     Indication: Polydipsia
     Dosage: 0.1 MILLIGRAM, BID
     Route: 048

REACTIONS (1)
  - Diabetes insipidus [Unknown]
